FAERS Safety Report 6744794-9 (Version None)
Quarter: 2010Q2

REPORT INFORMATION
  Report Type: 
  Country: None (occurrence: None)
  Receive Date: 20100527
  Receipt Date: 20100325
  Transmission Date: 20101027
  Serious: No
  Sender: FDA-Public Use
  Company Number: US-BRISTOL-MYERS SQUIBB COMPANY-14976906

PATIENT
  Sex: Male

DRUGS (4)
  1. ONGLYZA [Suspect]
     Dates: start: 20091101
  2. METFORMIN HCL [Suspect]
  3. GLIPIZIDE [Suspect]
  4. ACTOS [Suspect]

REACTIONS (1)
  - DRUG INEFFECTIVE [None]
